FAERS Safety Report 9268446 (Version 1)
Quarter: 2013Q2

REPORT INFORMATION
  Report Type: Spontaneous
  Country: US (occurrence: US)
  Receive Date: 20130502
  Receipt Date: 20130502
  Transmission Date: 20140414
  Serious: No
  Sender: FDA-Public Use
  Company Number: US-ALEXION-A201202173

PATIENT
  Age: 65 Year
  Sex: 0

DRUGS (15)
  1. SOLIRIS 300MG [Suspect]
     Indication: PAROXYSMAL NOCTURNAL HAEMOGLOBINURIA
     Dosage: UNK, Q2W
     Route: 042
     Dates: start: 200911, end: 201103
  2. SOLIRIS 300MG [Suspect]
     Dosage: UNK, Q12D
     Route: 042
     Dates: start: 201103, end: 201206
  3. SOLIRIS 300MG [Suspect]
     Dosage: 1500 MG, Q2W
     Route: 042
     Dates: start: 201206
  4. METHOTREXATE [Concomitant]
     Dosage: 15 MG, QW
     Dates: start: 20120227
  5. C-DOMPERIDONE [Concomitant]
     Dosage: 10 MG, QID
  6. WARFARIN SODIUM [Concomitant]
     Dosage: 5 MG, QD M-T-TH-F
     Route: 048
     Dates: start: 20120615
  7. WARFARIN SODIUM [Concomitant]
     Dosage: 5 MG, QD  SAT-SUN2
     Route: 048
     Dates: start: 20120615
  8. DILAUDID [Concomitant]
     Dosage: 4 MG, Q3-4H
     Route: 048
     Dates: start: 20120921
  9. VITAMIN D [Concomitant]
     Dosage: 50000 IU, QW
     Route: 048
  10. TYLENOL [Concomitant]
     Dosage: 1000 MG, TID PRN
     Route: 048
  11. CALTRATE [Concomitant]
     Dosage: 600 MG, BID
     Route: 048
  12. FOLIC ACID [Concomitant]
     Dosage: UNK, QD
     Route: 048
  13. AMBIEN [Concomitant]
     Dosage: 10 MG, QD
     Route: 048
  14. HYDROXYCHLOROQUINE SULFATE [Concomitant]
     Dosage: 200 MG, BID
     Route: 048
  15. ANDROGEL [Concomitant]
     Dosage: 40.5 MG, UNK
     Route: 062

REACTIONS (3)
  - Impaired gastric emptying [Unknown]
  - Blood blister [Unknown]
  - Nausea [Not Recovered/Not Resolved]
